FAERS Safety Report 15084561 (Version 1)
Quarter: 2018Q2

REPORT INFORMATION
  Report Type: Spontaneous
  Country: US (occurrence: US)
  Receive Date: 20180628
  Receipt Date: 20180628
  Transmission Date: 20180711
  Serious: No
  Sender: FDA-Public Use
  Company Number: US-PFIZER INC-2018256372

PATIENT
  Sex: Male

DRUGS (3)
  1. ZITHROMAX [Suspect]
     Active Substance: AZITHROMYCIN DIHYDRATE
     Dosage: UNK
  2. ALBUTEROL. [Concomitant]
     Active Substance: ALBUTEROL
     Dosage: 2 DF, 4X/DAY AS NEEDED
  3. EPIPEN [Concomitant]
     Active Substance: EPINEPHRINE
     Dosage: UNK

REACTIONS (1)
  - Rash [Unknown]
